FAERS Safety Report 6434299-7 (Version None)
Quarter: 2009Q4

REPORT INFORMATION
  Report Type: 
  Country: None (occurrence: None)
  Receive Date: 20091110
  Receipt Date: 20091029
  Transmission Date: 20100525
  Serious: Yes (Hospitalization)
  Sender: FDA-Public Use
  Company Number: DE-WYE-H11991909

PATIENT
  Age: 77 Year
  Sex: Female

DRUGS (18)
  1. PANTOPRAZOLE SODIUM [Suspect]
     Indication: GASTROOESOPHAGEAL REFLUX DISEASE
     Route: 048
  2. CLONT [Interacting]
     Indication: PNEUMONIA ASPIRATION
     Dosage: UNSPECIFIED
     Dates: start: 20090407, end: 20090424
  3. ROCEPHIN [Interacting]
     Indication: PNEUMONIA ASPIRATION
     Dosage: UNSPECIFIED
     Route: 042
     Dates: start: 20090407, end: 20090424
  4. TAZOBACTAM [Interacting]
     Indication: URINARY TRACT INFECTION
     Route: 042
     Dates: start: 20090519, end: 20090525
  5. PIPERACILLIN [Interacting]
     Indication: URINARY TRACT INFECTION
     Route: 042
     Dates: start: 20090519, end: 20090525
  6. VAGIMID [Interacting]
     Indication: URINARY TRACT INFECTION
     Route: 048
     Dates: start: 20090529
  7. ACETYLSALICYLIC ACID [Concomitant]
     Indication: ANGINA PECTORIS
     Route: 048
     Dates: start: 20090427
  8. METOPROLOL SUCCINATE [Concomitant]
     Indication: CORONARY ARTERY DISEASE
     Route: 048
  9. ENOXAPARIN SODIUM [Concomitant]
     Indication: ANGINA PECTORIS
     Route: 058
     Dates: start: 20090401, end: 20090519
  10. DIGITOXIN INJ [Concomitant]
     Indication: CARDIAC FAILURE
     Route: 048
     Dates: start: 20090519
  11. FRESUBIN [Concomitant]
     Route: 062
     Dates: start: 20090401
  12. ISCOVER [Concomitant]
     Indication: ISCHAEMIC HEART DISEASE PROPHYLAXIS
     Route: 048
     Dates: start: 20090520
  13. MADOPAR [Concomitant]
     Indication: PARKINSON'S DISEASE
     Route: 048
  14. METOCLOPRAMIDE HYDROCHLORIDE [Concomitant]
     Route: 048
     Dates: start: 20090427, end: 20090501
  15. NAFTIDROFURYL OXALATE [Concomitant]
     Route: 048
     Dates: start: 20060101, end: 20090501
  16. NOVALGIN [Concomitant]
     Indication: PAIN
     Route: 048
     Dates: start: 20090427
  17. TEVETEN [Concomitant]
     Indication: HYPERTENSION
     Route: 048
     Dates: start: 20060101, end: 20090501
  18. CIPRO [Interacting]
     Indication: URINARY TRACT INFECTION
     Route: 048
     Dates: start: 20090515, end: 20090518

REACTIONS (4)
  - CLOSTRIDIUM DIFFICILE COLITIS [None]
  - COLITIS [None]
  - DRUG INTERACTION [None]
  - HYPOKALAEMIA [None]
